FAERS Safety Report 5981828-3 (Version None)
Quarter: 2008Q4

REPORT INFORMATION
  Report Type: 
  Country: None (occurrence: None)
  Receive Date: 20081205
  Receipt Date: 20081120
  Transmission Date: 20090506
  Serious: Yes (Death)
  Sender: FDA-Public Use
  Company Number: CH-GENENTECH-271049

PATIENT
  Sex: Male

DRUGS (2)
  1. AVASTIN [Suspect]
     Indication: NON-SMALL CELL LUNG CANCER
     Dosage: 400 MG, UNK
     Route: 042
     Dates: start: 20070119, end: 20070209
  2. AVASTIN [Suspect]
     Dosage: 600 MG, UNK
     Route: 042
     Dates: start: 20070109

REACTIONS (3)
  - BLADDER TAMPONADE [None]
  - CYSTITIS HAEMORRHAGIC [None]
  - NON-SMALL CELL LUNG CANCER [None]
